FAERS Safety Report 18213265 (Version 1)
Quarter: 2020Q3

REPORT INFORMATION
  Report Type: Spontaneous
  Country: US (occurrence: US)
  Receive Date: 20200830
  Receipt Date: 20200830
  Transmission Date: 20201103
  Serious: Yes (Other)
  Sender: FDA-Public Use
  Company Number: None

PATIENT
  Age: 45 Year
  Sex: Male
  Weight: 116.1 kg

DRUGS (6)
  1. BESYLATE [Concomitant]
  2. GNC MULTIVITAMIN [Concomitant]
  3. LIPINOPRIL [Concomitant]
  4. COLGATE OPTIC WHITE RENEWAL ENAMEL STRENGTH [Suspect]
     Active Substance: SODIUM MONOFLUOROPHOSPHATE
     Indication: DENTAL COSMETIC PROCEDURE
     Dosage: ?          OTHER ROUTE:BRUSHING?
     Dates: start: 20200606, end: 20200804
  5. COLGATE OPTIC WHITE RENEWAL ENAMEL STRENGTH [Suspect]
     Active Substance: SODIUM MONOFLUOROPHOSPHATE
     Indication: DENTAL CARE
     Dosage: ?          OTHER ROUTE:BRUSHING?
     Dates: start: 20200606, end: 20200804
  6. AMLODIPINE [Concomitant]
     Active Substance: AMLODIPINE BESYLATE

REACTIONS (4)
  - Tooth injury [None]
  - Oral pain [None]
  - Headache [None]
  - Hyperaesthesia teeth [None]

NARRATIVE: CASE EVENT DATE: 20200725
